FAERS Safety Report 7246819 (Version 3)
Quarter: 2017Q1

REPORT INFORMATION
  Report Type: Spontaneous
  Country: JP (occurrence: JP)
  Receive Date: 20100115
  Receipt Date: 20170214
  Transmission Date: 20170429
  Serious: Yes (Other)
  Sender: FDA-Public Use
  Company Number: JP-BRISTOL-MYERS SQUIBB COMPANY-14914683

PATIENT
  Age: 6 Decade
  Sex: Female

DRUGS (1)
  1. VEPESID [Suspect]
     Active Substance: ETOPOSIDE
     Indication: CERVIX CARCINOMA
     Dosage: UNK
     Route: 048

REACTIONS (1)
  - Renal tubular necrosis [Unknown]
